FAERS Safety Report 20957858 (Version 1)
Quarter: 2022Q2

REPORT INFORMATION
  Report Type: Spontaneous
  Country: PT (occurrence: None)
  Receive Date: 20220614
  Receipt Date: 20220614
  Transmission Date: 20220721
  Serious: Yes (Other)
  Sender: FDA-Public Use
  Company Number: None

PATIENT
  Age: 51 Year
  Sex: Female

DRUGS (6)
  1. FILGRASTIM [Suspect]
     Active Substance: FILGRASTIM
     Indication: Breast cancer
     Route: 065
     Dates: start: 20211230
  2. CARBOPLATIN [Suspect]
     Active Substance: CARBOPLATIN
     Indication: Breast cancer
     Route: 065
     Dates: start: 20211230
  3. DOCETAXEL [Suspect]
     Active Substance: DOCETAXEL
     Indication: Breast cancer
     Route: 065
     Dates: start: 20211230
  4. FOSAPREPITANT [Suspect]
     Active Substance: FOSAPREPITANT
     Indication: Breast cancer
     Route: 065
     Dates: start: 20211230
  5. PERTUZUMAB [Suspect]
     Active Substance: PERTUZUMAB
     Indication: Breast cancer
     Route: 065
     Dates: start: 20211230
  6. HERZUMA [Suspect]
     Active Substance: TRASTUZUMAB-PKRB
     Indication: Breast cancer
     Route: 065
     Dates: start: 20211230

REACTIONS (3)
  - Hypoglycaemia [Recovered/Resolved]
  - Craniocerebral injury [Recovered/Resolved]
  - Syncope [Recovered/Resolved]

NARRATIVE: CASE EVENT DATE: 20220208
